FAERS Safety Report 9230267 (Version 1)
Quarter: 2013Q2

REPORT INFORMATION
  Report Type: Spontaneous
  Country: GB (occurrence: None)
  Receive Date: 20130411
  Receipt Date: 20130411
  Transmission Date: 20140414
  Serious: Yes (Hospitalization)
  Sender: FDA-Public Use
  Company Number: 2013AP004145

PATIENT
  Age: 53 Year
  Sex: Male

DRUGS (8)
  1. PERINDOPRIL ERBUMINE [Suspect]
     Indication: PRODUCT USED FOR UNKNOWN INDICATION
     Dates: start: 20121204
  2. ALLOPURINOL [Concomitant]
  3. BETNOVATE (BETAMETHASONE VALERATE) [Concomitant]
  4. CETIRIZINE (CETIRIZINE) [Concomitant]
  5. CITALOPRAM (CITALOPRAM) [Concomitant]
  6. NAPROXEN (NAPROXEN) [Concomitant]
  7. PREDNISOLONE (PREDNISOLONE) [Concomitant]
  8. SIMVASTATIN (SIMVASTATIN) [Concomitant]

REACTIONS (1)
  - Glossitis [None]
